FAERS Safety Report 5273275-7 (Version None)
Quarter: 2007Q1

REPORT INFORMATION
  Report Type: 
  Country: None (occurrence: None)
  Receive Date: 20070319
  Receipt Date: 20070301
  Transmission Date: 20070707
  Serious: Yes (Hospitalization)
  Sender: FDA-Public Use
  Company Number: DSA_29567_2007

PATIENT
  Age: 76 Year
  Sex: Female

DRUGS (5)
  1. MONO-TILDIEM [Suspect]
     Dosage: 200 MG QD PO
     Route: 048
     Dates: start: 20060613, end: 20060705
  2. BRICANYL [Concomitant]
  3. PREVISCAN [Concomitant]
  4. DIGOXIN [Concomitant]
  5. CORDARONE /00133102/ [Concomitant]

REACTIONS (4)
  - ACUTE GENERALISED EXANTHEMATOUS PUSTULOSIS [None]
  - ESCHERICHIA URINARY TRACT INFECTION [None]
  - FOREIGN BODY SENSATION IN EYES [None]
  - LYMPHADENOPATHY [None]
